FAERS Safety Report 6004600-7 (Version None)
Quarter: 2008Q4

REPORT INFORMATION
  Report Type: 
  Country: None (occurrence: None)
  Receive Date: 20081216
  Receipt Date: 20080714
  Transmission Date: 20090506
  Serious: No
  Sender: FDA-Public Use
  Company Number: US-BRISTOL-MYERS SQUIBB COMPANY-14158257

PATIENT
  Age: 72 Year
  Sex: Female
  Weight: 72 kg

DRUGS (8)
  1. PRAVACHOL [Suspect]
     Indication: BLOOD CHOLESTEROL INCREASED
     Dosage: DOSE INCREASED TO 80MG 1YR AGO.
  2. LYRICA [Concomitant]
  3. CALCIUM [Concomitant]
  4. CENTRUM [Concomitant]
  5. ASPIRIN [Concomitant]
  6. ATENOLOL [Concomitant]
  7. OXYCODONE [Concomitant]
  8. PERCOCET [Concomitant]

REACTIONS (1)
  - GAIT DISTURBANCE [None]
